FAERS Safety Report 10557924 (Version 1)
Quarter: 2014Q4

REPORT INFORMATION
  Report Type: Spontaneous
  Country: US (occurrence: None)
  Receive Date: 20141029
  Receipt Date: 20141029
  Transmission Date: 20150529
  Serious: Yes (Hospitalization)
  Sender: FDA-Public Use
  Company Number: FK201404454

PATIENT
  Age: 19 Year
  Sex: Male
  Weight: 80 kg

DRUGS (6)
  1. DINOTONIA (PHENYTOIN SODIUM) (PHENYTOIN SODIUM) [Concomitant]
  2. VIMPAT (PHENYTOIN SODIUM (PHENYTOIN SODIUM) [Concomitant]
  3. KALCID (CLARITHROMYCIN) [Concomitant]
  4. PROPOFOL 1% FRESNIUS (PROPOFOL) (PROPOFOL) [Suspect]
     Active Substance: PROPOFOL
     Indication: SEDATION
     Dosage: 3 MG/KG  AS NEEDED,  (NOT OTHERWISE SPECIFIED)
     Route: 042
     Dates: start: 20140930, end: 20141001
  5. VOLTAREN (DICLOFENAC) (DICLOFENAC) [Concomitant]
  6. CATAPRESAN (CLONIDINE) [Concomitant]

REACTIONS (1)
  - Hepatocellular injury [None]

NARRATIVE: CASE EVENT DATE: 20141001
